FAERS Safety Report 6655101-4 (Version None)
Quarter: 2010Q1

REPORT INFORMATION
  Report Type: 
  Country: None (occurrence: None)
  Receive Date: 20100329
  Receipt Date: 20100318
  Transmission Date: 20100710
  Serious: Yes (Other)
  Sender: FDA-Public Use
  Company Number: CA-JNJFOC-20090904525

PATIENT
  Sex: Male
  Weight: 71 kg

DRUGS (4)
  1. REMICADE [Suspect]
     Indication: DRUG USE FOR UNKNOWN INDICATION
     Dosage: 5 INFUSIONS
     Route: 042
  2. SOLU-CORTEF [Concomitant]
     Indication: PREMEDICATION
  3. TYLENOL-500 [Concomitant]
     Indication: PREMEDICATION
  4. BENADRYL [Concomitant]
     Indication: PREMEDICATION

REACTIONS (1)
  - SYNCOPE [None]
